FAERS Safety Report 17507509 (Version 2)
Quarter: 2020Q1

REPORT INFORMATION
  Report Type: Report from Study
  Country: US (occurrence: US)
  Receive Date: 20200306
  Receipt Date: 20200317
  Transmission Date: 20200409
  Serious: Yes (Other)
  Sender: FDA-Public Use
  Company Number: US-ROCHE-2559147

PATIENT
  Sex: Female

DRUGS (1)
  1. ACTEMRA [Suspect]
     Active Substance: TOCILIZUMAB
     Indication: RETINAL VASCULITIS
     Dosage: INJECT 162MG SUBCUTANEOUSLY EVERY OTHER WEEK
     Route: 058

REACTIONS (6)
  - Intentional product use issue [Unknown]
  - Insomnia [Unknown]
  - Off label use [Unknown]
  - Renal cyst [Unknown]
  - Pancreatic cyst [Unknown]
  - Hepatic cyst [Unknown]
